FAERS Safety Report 14503562 (Version 1)
Quarter: 2018Q1

REPORT INFORMATION
  Report Type: Spontaneous
  Country: US (occurrence: US)
  Receive Date: 20180208
  Receipt Date: 20180208
  Transmission Date: 20180509
  Serious: No
  Sender: FDA-Public Use
  Company Number: US-JNJFOC-20171125144

PATIENT
  Age: 24 Month
  Sex: Male

DRUGS (1)
  1. TYLENOL CHILDRENS SUSPENSION [Suspect]
     Active Substance: ACETAMINOPHEN
     Indication: TONSILLECTOMY
     Route: 048

REACTIONS (4)
  - Retching [Unknown]
  - Product taste abnormal [Unknown]
  - Product use in unapproved indication [Unknown]
  - Off label use [Unknown]
